FAERS Safety Report 4750380-2 (Version None)
Quarter: 2005Q3

REPORT INFORMATION
  Report Type: 
  Country: None (occurrence: None)
  Receive Date: 20050818
  Receipt Date: 20050804
  Transmission Date: 20060218
  Serious: Yes (Hospitalization)
  Sender: FDA-Public Use
  Company Number: ST-2005-008510

PATIENT
  Age: 64 Year
  Sex: Male

DRUGS (19)
  1. OLMESARTAN [Suspect]
     Indication: DIABETIC NEPHROPATHY
     Dosage: 10 MG QD PO
     Route: 048
     Dates: start: 20050106, end: 20050202
  2. OLMESARTAN [Suspect]
     Indication: DIABETIC NEPHROPATHY
     Dosage: 20 MG QD PO
     Route: 048
     Dates: start: 20050203, end: 20050622
  3. OLMESARTAN [Suspect]
     Indication: DIABETIC NEPHROPATHY
     Dosage: 40 MG QD PO
     Route: 048
     Dates: start: 20050623, end: 20050721
  4. PLACEBO [Suspect]
     Dates: start: 20041116, end: 20050105
  5. PLACEBO [Suspect]
     Dosage: 10 MG QD PO
     Route: 048
     Dates: start: 20050106, end: 20050202
  6. PLACEBO [Suspect]
     Dosage: 20 MG QD PO
     Route: 048
     Dates: start: 20050203, end: 20050622
  7. PLACEBO [Suspect]
     Dosage: 40 MG QD PO
     Route: 048
     Dates: start: 20050623, end: 20050721
  8. LASIX [Concomitant]
  9. ADALAT [Concomitant]
  10. DIAMICRON [Concomitant]
  11. ZOCOR [Concomitant]
  12. BETALOC [Concomitant]
  13. ALDOMET [Concomitant]
  14. ZESTRIL [Concomitant]
  15. ANALGESIC BALM [Concomitant]
  16. ASPIRIN [Concomitant]
  17. ROSIGLITAZONE [Concomitant]
  18. STEMETIL ^AVENTIS PHARMA^ [Concomitant]
  19. AVANDIA [Concomitant]

REACTIONS (5)
  - HYPERKALAEMIA [None]
  - RENAL DISORDER [None]
  - RENAL IMPAIRMENT [None]
  - SINUS BRADYCARDIA [None]
  - ULTRASOUND ABDOMEN ABNORMAL [None]
